FAERS Safety Report 15247478 (Version 1)
Quarter: 2018Q3

REPORT INFORMATION
  Report Type: Spontaneous
  Country: FR (occurrence: FR)
  Receive Date: 20180807
  Receipt Date: 20180807
  Transmission Date: 20181010
  Serious: Yes (Other)
  Sender: FDA-Public Use
  Company Number: FR-OCTA-GAM14218FR

PATIENT
  Age: 3 Year
  Sex: Female

DRUGS (1)
  1. OCTAGAM IMMUNE GLOBULIN (HUMAN) [Suspect]
     Active Substance: HUMAN IMMUNOGLOBULIN G
     Indication: IMMUNODEFICIENCY
     Route: 042
     Dates: start: 20180712, end: 20180712

REACTIONS (1)
  - Oral herpes [Unknown]

NARRATIVE: CASE EVENT DATE: 20180718
